FAERS Safety Report 8100450-6 (Version None)
Quarter: 2012Q1

REPORT INFORMATION
  Report Type: 
  Country: None (occurrence: None)
  Receive Date: 20120129
  Receipt Date: 20111116
  Transmission Date: 20120608
  Serious: No
  Sender: FDA-Public Use
  Company Number: US-ABBOTT-11P-163-0870371-00

PATIENT
  Sex: Female

DRUGS (6)
  1. HUMIRA [Suspect]
     Indication: CROHN'S DISEASE
     Dates: start: 20111015, end: 20111015
  2. HUMIRA [Suspect]
     Dates: start: 20111029, end: 20111029
  3. HUMIRA [Suspect]
  4. UNKNOWN MEDICATION [Concomitant]
     Indication: HYPERTENSION
  5. A LOT OF UNKNOWN MEDICATIONS [Concomitant]
     Indication: PRODUCT USED FOR UNKNOWN INDICATION
  6. UNKNOWN MEDICATION [Concomitant]
     Indication: HYPOTHYROIDISM

REACTIONS (13)
  - INJECTION SITE PRURITUS [None]
  - HEADACHE [None]
  - RASH MACULAR [None]
  - INJECTION SITE ERYTHEMA [None]
  - INJECTION SITE NODULE [None]
  - PRURITUS [None]
  - ABDOMINAL PAIN UPPER [None]
  - RASH PUSTULAR [None]
  - CONDITION AGGRAVATED [None]
  - NAUSEA [None]
  - VOMITING [None]
  - SCAB [None]
  - MALAISE [None]
